FAERS Safety Report 24388910 (Version 3)
Quarter: 2024Q4

REPORT INFORMATION
  Report Type: Report from Study
  Country: FR (occurrence: FR)
  Receive Date: 20241002
  Receipt Date: 20241121
  Transmission Date: 20250115
  Serious: Yes (Hospitalization)
  Sender: PFIZER
  Company Number: FR-PFIZER INC-PV202400127928

PATIENT
  Age: 59 Year
  Sex: Male
  Weight: 54 kg

DRUGS (10)
  1. TISOTUMAB VEDOTIN [Suspect]
     Active Substance: TISOTUMAB VEDOTIN
     Indication: Squamous cell carcinoma of head and neck
     Dosage: 1.7 MG/KG, IV INFUSION ON DAY 1 AND 15 OF EVERY 28 DAY CYCLE (2Q4W REGIMEN)
     Route: 042
     Dates: start: 20240521, end: 20240830
  2. CARBOPLATIN [Suspect]
     Active Substance: CARBOPLATIN
     Indication: Head and neck cancer
     Dosage: 2 MG PER CALVERT, ON DAY (D) 1, D8, D15 EVERY 28 DAYS
     Route: 042
     Dates: start: 20240913, end: 20240913
  3. CARBOPLATIN [Suspect]
     Active Substance: CARBOPLATIN
     Dosage: 2 MG PER CALVERT, ON DAY (D) 1, D8, D15 EVERY 28 DAYS
     Route: 042
     Dates: start: 20240920, end: 20240920
  4. PACLITAXEL [Suspect]
     Active Substance: PACLITAXEL
     Indication: Head and neck cancer
     Dosage: 80 MG/M2, D1 , D8, D15 EVERY 28 DAYS
     Route: 042
     Dates: start: 20240913, end: 20240913
  5. PACLITAXEL [Suspect]
     Active Substance: PACLITAXEL
     Dosage: 80 MG/M2, D1 , D8, D15 EVERY 28 DAYS
     Route: 042
     Dates: start: 20240920, end: 20240920
  6. CETUXIMAB [Suspect]
     Active Substance: CETUXIMAB
     Indication: Head and neck cancer
     Dosage: 500 MG/M2, D1 EVERY 4 WEEKS
     Route: 042
     Dates: start: 20240913, end: 20240913
  7. DOLIPRANE [Concomitant]
     Active Substance: ACETAMINOPHEN
     Indication: Tumour pain
     Dosage: UNK
     Dates: start: 20240913
  8. DULOXETINE [Concomitant]
     Active Substance: DULOXETINE
     Indication: Neuropathy peripheral
     Dosage: UNK
     Dates: start: 20240705
  9. XANAX [Concomitant]
     Active Substance: ALPRAZOLAM
     Indication: Insomnia
     Dosage: UNK
     Dates: start: 20240705
  10. NICOTINE [Concomitant]
     Active Substance: NICOTINE
     Indication: Nicotine dependence
     Dosage: UNK, PATCH
     Dates: start: 20240427

REACTIONS (2)
  - Stomatitis [Recovered/Resolved]
  - Oral fungal infection [Recovered/Resolved]

NARRATIVE: CASE EVENT DATE: 20240925
